FAERS Safety Report 8140599-5 (Version None)
Quarter: 2012Q1

REPORT INFORMATION
  Report Type: 
  Country: None (occurrence: None)
  Receive Date: 20120216
  Receipt Date: 20120209
  Transmission Date: 20120608
  Serious: Yes (Other)
  Sender: FDA-Public Use
  Company Number: US-PFIZER INC-2011050506

PATIENT
  Sex: Female
  Weight: 63.946 kg

DRUGS (6)
  1. XALATAN [Suspect]
     Indication: OPEN ANGLE GLAUCOMA
     Dosage: UNK, AT NIGHT IN ONE EYE
     Dates: start: 20101101
  2. XALATAN [Suspect]
     Indication: GLAUCOMA
     Dosage: UNK
  3. LATANOPROST [Suspect]
     Indication: GLAUCOMA
     Dosage: UNK, 2X/DAY
  4. TRAVATAN [Suspect]
     Dosage: UNK
  5. TIMOLOL MALEATE [Suspect]
     Dosage: 0.5 (UNITS UNKNOWN), DAILY
  6. WARFARIN SODIUM [Suspect]
     Dosage: UNK

REACTIONS (14)
  - VISION BLURRED [None]
  - INTRAOCULAR PRESSURE INCREASED [None]
  - EYELID OEDEMA [None]
  - BLISTER [None]
  - SKIN ULCER [None]
  - OCULAR HYPERAEMIA [None]
  - LACRIMATION INCREASED [None]
  - RHINORRHOEA [None]
  - ERYTHEMA [None]
  - MADAROSIS [None]
  - SKIN IRRITATION [None]
  - EYE SWELLING [None]
  - YELLOW SKIN [None]
  - ALOPECIA [None]
